FAERS Safety Report 5961083-0 (Version None)
Quarter: 2008Q4

REPORT INFORMATION
  Report Type: 
  Country: None (occurrence: None)
  Receive Date: 20081121
  Receipt Date: 20081114
  Transmission Date: 20090506
  Serious: Yes (Hospitalization)
  Sender: FDA-Public Use
  Company Number: JP-BRISTOL-MYERS SQUIBB COMPANY-14407423

PATIENT
  Age: 21 Year
  Sex: Male
  Weight: 63 kg

DRUGS (9)
  1. DESYREL [Suspect]
     Indication: RESTLESSNESS
     Route: 048
     Dates: start: 20080727, end: 20080731
  2. DESYREL [Suspect]
     Indication: HALLUCINATION
     Route: 048
     Dates: start: 20080727, end: 20080731
  3. VFEND [Suspect]
     Indication: ASPERGILLOSIS ORAL
     Dosage: FORM = INJ
     Dates: start: 20080723, end: 20080801
  4. LASIX [Suspect]
     Indication: OEDEMA
     Dosage: 30MG/DAY FROM 15-JUL-08 TO 21-JUL-08 (7 DAYS), 240MG/DAY FROM 22JUL08-14AUG08 (24 DAYS)
     Dates: start: 20080722, end: 20080814
  5. RISPERDAL [Suspect]
     Indication: RESTLESSNESS
     Route: 048
     Dates: start: 20080727, end: 20080731
  6. VENOGLOBULIN-I [Suspect]
     Dates: start: 20080722
  7. ALBUMIN (HUMAN) [Concomitant]
  8. ROCEPHIN [Concomitant]
     Dates: start: 20080715, end: 20080730
  9. POTASSIUM CANRENOATE [Concomitant]
     Dates: start: 20080720, end: 20080721

REACTIONS (4)
  - AMNESIA [None]
  - DISORIENTATION [None]
  - RENAL FAILURE [None]
  - SOMNOLENCE [None]
